FAERS Safety Report 18035459 (Version 1)
Quarter: 2020Q3

REPORT INFORMATION
  Report Type: Spontaneous
  Country: US (occurrence: US)
  Receive Date: 20200716
  Receipt Date: 20200716
  Transmission Date: 20201103
  Serious: No
  Sender: FDA-Public Use
  Company Number: None

PATIENT
  Age: 43 Year
  Sex: Female
  Weight: 49.44 kg

DRUGS (1)
  1. ALBUTEROL SULFATE HFA [Suspect]
     Active Substance: ALBUTEROL SULFATE
     Indication: ASTHMA
     Dosage: ?          OTHER FREQUENCY:EVERY4HOURSASNEEDE;?
     Route: 055
     Dates: start: 20180718

REACTIONS (3)
  - Product substitution issue [None]
  - Asthma [None]
  - Therapeutic product ineffective [None]

NARRATIVE: CASE EVENT DATE: 20200618
